FAERS Safety Report 5409951-2 (Version None)
Quarter: 2007Q3

REPORT INFORMATION
  Report Type: 
  Country: None (occurrence: None)
  Receive Date: 20070809
  Receipt Date: 20040220
  Transmission Date: 20080115
  Serious: Yes (Death)
  Sender: FDA-Public Use
  Company Number: US-PFIZER INC-2007055042

PATIENT
  Age: 1 Year
  Sex: Female

DRUGS (1)
  1. VANTIN [Suspect]
     Indication: BRONCHITIS

REACTIONS (3)
  - BRONCHIOLITIS [None]
  - BRONCHITIS [None]
  - RESPIRATORY DISTRESS [None]
